FAERS Safety Report 6655168-3 (Version None)
Quarter: 2010Q1

REPORT INFORMATION
  Report Type: 
  Country: None (occurrence: None)
  Receive Date: 20100329
  Receipt Date: 20100323
  Transmission Date: 20100710
  Serious: Yes (Death, Hospitalization, Disabling)
  Sender: FDA-Public Use
  Company Number: NL-CELGENEUS-114-50794-10022014

PATIENT
  Sex: Male
  Weight: 69 kg

DRUGS (5)
  1. VIDAZA [Suspect]
     Route: 058
     Dates: start: 20100118, end: 20100124
  2. FUROSEMIDE [Concomitant]
     Indication: OEDEMA
     Route: 048
     Dates: start: 20100114, end: 20100214
  3. TRIAMTEREN HCT [Concomitant]
     Indication: OEDEMA
     Dosage: 50/25
     Route: 048
     Dates: start: 20100111, end: 20100214
  4. LACTULOSE [Concomitant]
     Route: 065
     Dates: end: 20100214
  5. DIAZEPAM [Concomitant]
     Indication: STRESS
     Route: 048
     Dates: end: 20100214

REACTIONS (2)
  - POLYNEUROPATHY [None]
  - PSEUDOMONAL SEPSIS [None]
